FAERS Safety Report 16744773 (Version 1)
Quarter: 2019Q3

REPORT INFORMATION
  Report Type: Spontaneous
  Country: FR (occurrence: FR)
  Receive Date: 20190827
  Receipt Date: 20190827
  Transmission Date: 20191005
  Serious: Yes (Other)
  Sender: FDA-Public Use
  Company Number: FR-TEVA-2019-FR-1096518

PATIENT
  Age: 56 Year
  Sex: Female
  Weight: 61 kg

DRUGS (5)
  1. PERINDOPRIL [Concomitant]
     Active Substance: PERINDOPRIL
     Indication: HYPERTENSION
     Route: 048
     Dates: start: 20180601, end: 20190601
  2. ARIPIPRAZOLE. [Suspect]
     Active Substance: ARIPIPRAZOLE
     Indication: MANIA
     Dosage: 20 MG
     Route: 048
     Dates: start: 20190326, end: 20190328
  3. PRAZEPAM [Suspect]
     Active Substance: PRAZEPAM
     Indication: ANXIETY
     Route: 048
     Dates: start: 20190328, end: 20190330
  4. ALIMEMAZINE [Suspect]
     Active Substance: TRIMEPRAZINE
     Indication: INSOMNIA
     Route: 048
     Dates: start: 20190326, end: 20190410
  5. TERALITHE [Concomitant]
     Active Substance: LITHIUM CARBONATE
     Indication: MANIA
     Dosage: UNKNOWN
     Route: 048
     Dates: start: 20180601, end: 20190425

REACTIONS (6)
  - Psychomotor skills impaired [Recovering/Resolving]
  - Blood creatine phosphokinase increased [Recovered/Resolved]
  - Hyperthermia [Recovered/Resolved]
  - Hepatocellular injury [Recovering/Resolving]
  - Confusional state [Recovering/Resolving]
  - Dehydration [Recovered/Resolved]

NARRATIVE: CASE EVENT DATE: 20190328
